FAERS Safety Report 25840396 (Version 2)
Quarter: 2025Q4

REPORT INFORMATION
  Report Type: Report from Study
  Country: CA (occurrence: CA)
  Receive Date: 20250924
  Receipt Date: 20251016
  Transmission Date: 20260118
  Serious: Yes (Other)
  Sender: ALEXION PHARMACEUTICALS
  Company Number: CA-AstraZeneca-CH-00888326A

PATIENT
  Age: 54 Year
  Sex: Female

DRUGS (5)
  1. TEZEPELUMAB [Suspect]
     Active Substance: TEZEPELUMAB
     Indication: Asthma
     Dosage: 210 MILLIGRAM
     Dates: start: 20250113, end: 20250915
  2. TEZEPELUMAB [Suspect]
     Active Substance: TEZEPELUMAB
  3. SPIRIVA [Concomitant]
     Active Substance: TIOTROPIUM BROMIDE MONOHYDRATE
     Dosage: UNK
     Route: 065
  4. ZENHALE [Concomitant]
     Active Substance: FORMOTEROL FUMARATE\MOMETASONE FUROATE
     Dosage: UNK
     Route: 065
  5. SYMBICORT [Concomitant]
     Active Substance: BUDESONIDE\FORMOTEROL FUMARATE DIHYDRATE
     Dosage: UNK
     Route: 065

REACTIONS (12)
  - Productive cough [Unknown]
  - Faeces soft [Unknown]
  - Flatulence [Unknown]
  - Abdominal discomfort [Unknown]
  - Inflammation [Unknown]
  - Drug ineffective [Unknown]
  - Clostridium difficile infection [Unknown]
  - Asthma [Unknown]
  - Dyspnoea [Unknown]
  - Gait disturbance [Unknown]
  - Diarrhoea [Unknown]
  - Inflammatory marker increased [Unknown]
